FAERS Safety Report 16983552 (Version 2)
Quarter: 2019Q4

REPORT INFORMATION
  Report Type: Spontaneous
  Country: US (occurrence: US)
  Receive Date: 20191101
  Receipt Date: 20191127
  Transmission Date: 20200122
  Serious: No
  Sender: FDA-Public Use
  Company Number: US-INCYTE CORPORATION-2019IN010627

PATIENT

DRUGS (1)
  1. JAKAFI [Suspect]
     Active Substance: RUXOLITINIB
     Indication: MYELOPROLIFERATIVE NEOPLASM
     Dosage: 20 MILLIGRAM, BID
     Route: 048
     Dates: start: 201910

REACTIONS (6)
  - Pyrexia [Unknown]
  - Coital bleeding [Unknown]
  - Off label use [Unknown]
  - Fatigue [Unknown]
  - Hypersomnia [Unknown]
  - Respiratory tract congestion [Unknown]
